FAERS Safety Report 17103103 (Version 2)
Quarter: 2019Q4

REPORT INFORMATION
  Report Type: Report from Study
  Country: US (occurrence: US)
  Receive Date: 20191203
  Receipt Date: 20191231
  Transmission Date: 20200122
  Serious: Yes (Other)
  Sender: FDA-Public Use
  Company Number: US-ROCHE-2480846

PATIENT
  Age: 41 Year
  Sex: Female
  Weight: 56.75 kg

DRUGS (4)
  1. OCREVUS [Suspect]
     Active Substance: OCRELIZUMAB
     Indication: RELAPSING-REMITTING MULTIPLE SCLEROSIS
     Dosage: SECOND HALF INFUSION RECEIVED ON 08/OCT/2018, 08/APR/2019 AND FULL DOSE ON 29/APR/2019
     Route: 042
     Dates: start: 20180924
  2. CARBAMAZEPINE. [Concomitant]
     Active Substance: CARBAMAZEPINE
     Indication: ANXIETY
     Dosage: 1.5 TABLET IN THE MORNING AND 1 TABLET AT NIGHT
     Route: 048
  3. DIFLUCAN [Concomitant]
     Active Substance: FLUCONAZOLE
  4. OCREVUS [Suspect]
     Active Substance: OCRELIZUMAB
     Dosage: LAST DOSE
     Route: 042
     Dates: start: 20191009

REACTIONS (4)
  - Memory impairment [Not Recovered/Not Resolved]
  - Bacterial vaginosis [Recovering/Resolving]
  - Fungal infection [Unknown]
  - Gait disturbance [Not Recovered/Not Resolved]

NARRATIVE: CASE EVENT DATE: 20190522
